FAERS Safety Report 18982125 (Version 2)
Quarter: 2021Q2

REPORT INFORMATION
  Report Type: Spontaneous
  Country: JP (occurrence: JP)
  Receive Date: 20210308
  Receipt Date: 20210428
  Transmission Date: 20210717
  Serious: Yes (Death, Hospitalization, Other)
  Sender: FDA-Public Use
  Company Number: JP-DSJP-DSJ-2021-102472

PATIENT
  Age: 7 Decade
  Sex: Female
  Weight: 49 kg

DRUGS (9)
  1. ENHERTU [Suspect]
     Active Substance: FAM-TRASTUZUMAB DERUXTECAN-NXKI
     Indication: HER2 POSITIVE GASTRIC CANCER
     Dosage: 6.4 MG/KG, ONCE EVERY 3 WK
     Route: 041
     Dates: start: 20201225, end: 20201225
  2. BIO?THREE [Concomitant]
     Active Substance: HERBALS
     Dosage: 2 DF, TID
     Route: 048
     Dates: start: 20181030
  3. TAKECAB [Concomitant]
     Active Substance: VONOPRAZAN FUMARATE
     Dosage: 20 MG, QD
     Route: 048
     Dates: start: 20181030
  4. FENTOS [Concomitant]
     Active Substance: FENTANYL
     Dosage: 1 MG, QD
     Route: 050
     Dates: start: 20201119
  5. SPIRONOLACTONE. [Concomitant]
     Active Substance: SPIRONOLACTONE
     Dosage: 50 MG, QD
     Route: 048
     Dates: start: 20201220
  6. L ASPARTATE K [Concomitant]
     Active Substance: POTASSIUM ASPARTATE
     Dosage: 300 MG, QD
     Route: 048
     Dates: start: 20201221
  7. ENHERTU [Suspect]
     Active Substance: FAM-TRASTUZUMAB DERUXTECAN-NXKI
     Dosage: 4.4 MG/KG, ONCE EVERY 3 WK
     Route: 041
     Dates: start: 20210115, end: 20210115
  8. SYMPROIC [Concomitant]
     Active Substance: NALDEMEDINE
     Dosage: 0.2 MG, QD
     Route: 048
     Dates: start: 20200914
  9. FUROSEMIDE. [Concomitant]
     Active Substance: FUROSEMIDE
     Dosage: 20 MG, QD
     Route: 048
     Dates: start: 20201220

REACTIONS (7)
  - Neutrophil count decreased [Recovered/Resolved]
  - Febrile neutropenia [Recovered/Resolved]
  - Neutrophil count decreased [Unknown]
  - Platelet count decreased [Recovered/Resolved]
  - Disease progression [Fatal]
  - Anaemia [Recovered/Resolved]
  - White blood cell count decreased [Recovered/Resolved]

NARRATIVE: CASE EVENT DATE: 2021
